FAERS Safety Report 8421600-8 (Version None)
Quarter: 2012Q2

REPORT INFORMATION
  Report Type: 
  Country: None (occurrence: None)
  Receive Date: 20120608
  Receipt Date: 20120605
  Transmission Date: 20120825
  Serious: No
  Sender: FDA-Public Use
  Company Number: US-PFIZER INC-2012135540

PATIENT
  Sex: Female
  Weight: 78.005 kg

DRUGS (11)
  1. LORTAB [Concomitant]
     Indication: FIBROMYALGIA
     Dosage: 20/1000 MG, AS NEEDED
     Route: 048
  2. TIZANIDINE [Concomitant]
     Indication: SPONDYLITIS
     Dosage: UNK
  3. TIZANIDINE [Concomitant]
     Indication: ARTHRITIS
  4. TIZANIDINE [Concomitant]
     Indication: MUSCLE SPASMS
  5. LORTAB [Concomitant]
     Indication: SPONDYLITIS
  6. LORTAB [Concomitant]
     Indication: ARTHRITIS
  7. KLONOPIN [Suspect]
     Indication: STRESS
     Dosage: UNK
  8. LYRICA [Suspect]
     Indication: FIBROMYALGIA
     Dosage: 150 MG, 3X/DAY
     Route: 048
     Dates: end: 20120501
  9. KLONOPIN [Suspect]
     Indication: ANXIETY
  10. RANITIDINE [Concomitant]
     Indication: GASTRIC DISORDER
     Dosage: 150 MG, 3X/DAY
  11. CITALOPRAM [Concomitant]
     Indication: DEPRESSION
     Dosage: UNK

REACTIONS (11)
  - COLD SWEAT [None]
  - DIARRHOEA [None]
  - WITHDRAWAL SYNDROME [None]
  - NERVOUSNESS [None]
  - HEADACHE [None]
  - PAIN [None]
  - PAIN IN EXTREMITY [None]
  - ANXIETY [None]
  - FEELING ABNORMAL [None]
  - MALAISE [None]
  - VOMITING [None]
